FAERS Safety Report 9333266 (Version 1)
Quarter: 2013Q2

REPORT INFORMATION
  Report Type: Spontaneous
  Country: US (occurrence: US)
  Receive Date: 20130606
  Receipt Date: 20130606
  Transmission Date: 20140414
  Serious: Yes (Other)
  Sender: FDA-Public Use
  Company Number: US-PFIZER INC-2013169350

PATIENT
  Age: 35 Year
  Sex: Female
  Weight: 54.42 kg

DRUGS (2)
  1. CYTOMEL [Suspect]
     Indication: AUTOIMMUNE THYROIDITIS
     Dosage: 10 MG, 1X/DAY
     Route: 048
     Dates: start: 20130531
  2. SYNTHROID [Concomitant]
     Dosage: UNK

REACTIONS (2)
  - Coeliac disease [Unknown]
  - Abdominal pain [Not Recovered/Not Resolved]
